FAERS Safety Report 4397699-5 (Version None)
Quarter: 2004Q3

REPORT INFORMATION
  Report Type: 
  Country: None (occurrence: None)
  Receive Date: 20040713
  Receipt Date: 20040702
  Transmission Date: 20050211
  Serious: Yes (Hospitalization, Other)
  Sender: FDA-Public Use
  Company Number: 2003150213US

PATIENT
  Age: 53 Year
  Sex: Female

DRUGS (8)
  1. CELEBREX [Suspect]
     Indication: BACK DISORDER
     Dosage: ORAL
     Route: 048
     Dates: start: 20020920, end: 20020101
  2. TOPAMAX [Concomitant]
  3. BENADRYL [Concomitant]
  4. VICODIN [Concomitant]
  5. ALBUTEROL [Concomitant]
  6. TENORMIN [Concomitant]
  7. NITROLINGUAL [Concomitant]
  8. CAPOTEN [Concomitant]

REACTIONS (20)
  - ABASIA [None]
  - ASTHENIA [None]
  - BLADDER DISORDER [None]
  - BLOOD PRESSURE FLUCTUATION [None]
  - CATHETER RELATED COMPLICATION [None]
  - CONDITION AGGRAVATED [None]
  - CONVULSION [None]
  - DIABETES MELLITUS [None]
  - DYSPEPSIA [None]
  - EPISTAXIS [None]
  - FALL [None]
  - GASTRIC DISORDER [None]
  - GASTROINTESTINAL ULCER [None]
  - HAEMATURIA [None]
  - HEART RATE INCREASED [None]
  - HYPOAESTHESIA [None]
  - IRRITABLE BOWEL SYNDROME [None]
  - MUSCLE CRAMP [None]
  - URINARY RETENTION [None]
  - WEIGHT INCREASED [None]
